FAERS Safety Report 9075644 (Version 1)
Quarter: 2013Q1

REPORT INFORMATION
  Report Type: Report from Study
  Country: US (occurrence: US)
  Receive Date: 20130129
  Receipt Date: 20130129
  Transmission Date: 20140127
  Serious: No
  Sender: FDA-Public Use
  Company Number: US-ABBOTT-12P-163-0940432-00

PATIENT
  Sex: Female

DRUGS (4)
  1. HUMIRA 40 MG/0.8 ML PEN [Suspect]
     Indication: MATERNAL EXPOSURE TIMING UNSPECIFIED
     Route: 064
  2. HUMIRA 40 MG/0.8 ML PEN [Suspect]
     Indication: EXPOSURE DURING BREAST FEEDING
     Route: 063
  3. LEVOTHYROXINE [Suspect]
     Indication: MATERNAL EXPOSURE TIMING UNSPECIFIED
     Route: 064
  4. LEVOTHYROXINE [Suspect]
     Indication: EXPOSURE DURING BREAST FEEDING
     Route: 063

REACTIONS (3)
  - Foetal exposure during pregnancy [Unknown]
  - Umbilical cord around neck [Recovered/Resolved]
  - Exposure during breast feeding [Unknown]
